FAERS Safety Report 20458701 (Version 2)
Quarter: 2022Q1

REPORT INFORMATION
  Report Type: Spontaneous
  Country: US (occurrence: US)
  Receive Date: 20220211
  Receipt Date: 20220326
  Transmission Date: 20220424
  Serious: No
  Sender: FDA-Public Use
  Company Number: US-SANOFI-00956944

PATIENT
  Age: 71 Year
  Sex: Male

DRUGS (1)
  1. LANTUS SOLOSTAR [Suspect]
     Active Substance: INSULIN GLARGINE
     Indication: Diabetes mellitus
     Dosage: 30 IU, QD

REACTIONS (6)
  - Cardiac disorder [Unknown]
  - Agitation [Unknown]
  - Somnolence [Unknown]
  - Gait disturbance [Unknown]
  - Unevaluable event [Unknown]
  - Device issue [Unknown]
